FAERS Safety Report 5685132-2 (Version None)
Quarter: 2008Q1

REPORT INFORMATION
  Report Type: 
  Country: None (occurrence: None)
  Receive Date: 20080328
  Receipt Date: 20080319
  Transmission Date: 20080703
  Serious: Yes (Hospitalization)
  Sender: FDA-Public Use
  Company Number: FR-PFIZER INC-2006113794

PATIENT
  Sex: Male
  Weight: 67 kg

DRUGS (11)
  1. SU-011,248 [Suspect]
     Indication: NEOPLASM MALIGNANT
     Route: 048
  2. IRINOTECAN HCL [Suspect]
     Indication: NEOPLASM MALIGNANT
     Route: 042
     Dates: start: 20060516
  3. ATROPINE [Concomitant]
     Route: 058
     Dates: start: 20060823, end: 20060823
  4. ZOPHREN [Concomitant]
     Route: 048
     Dates: start: 20060823, end: 20060823
  5. METHYLPREDNISOLONE SODIUM SUCCINATE [Concomitant]
     Route: 042
     Dates: start: 20060823, end: 20060823
  6. XANAX [Concomitant]
     Route: 048
     Dates: start: 20060823, end: 20060823
  7. AMOXICILLIN [Concomitant]
     Route: 048
     Dates: start: 20060806, end: 20060808
  8. ACETAMINOPHEN [Concomitant]
     Route: 042
     Dates: start: 20060808, end: 20060809
  9. PIPERACILLIN SODIUM AND TAZOBACTAM SODIUM [Concomitant]
     Route: 042
     Dates: start: 20060808, end: 20060809
  10. AMIKLIN [Concomitant]
     Route: 042
     Dates: start: 20060808, end: 20060809
  11. TRIFLUCAN [Concomitant]
     Route: 048
     Dates: start: 20060809, end: 20060810

REACTIONS (2)
  - HEART RATE IRREGULAR [None]
  - PALPITATIONS [None]
